FAERS Safety Report 10360636 (Version 1)
Quarter: 2014Q3

REPORT INFORMATION
  Report Type: Other
  Country: DK (occurrence: IN)
  Receive Date: 20140804
  Receipt Date: 20140804
  Transmission Date: 20150326
  Serious: Yes (Hospitalization, Other)
  Sender: FDA-Public Use
  Company Number: IN-FRI-1000069513

PATIENT
  Age: 40 Year
  Sex: Female

DRUGS (2)
  1. ESCITALOPRAM [Suspect]
     Active Substance: ESCITALOPRAM OXALATE
  2. CLONAZEPAM. [Suspect]
     Active Substance: CLONAZEPAM
     Dosage: 0.5 MG AT NIGHTTIME

REACTIONS (5)
  - Extrapyramidal disorder [Recovered/Resolved]
  - Dysarthria [Recovered/Resolved]
  - Gaze palsy [Recovered/Resolved]
  - Hypokinesia [Recovered/Resolved]
  - Drooling [Recovered/Resolved]
